FAERS Safety Report 12615659 (Version 2)
Quarter: 2016Q3

REPORT INFORMATION
  Report Type: Report from Study
  Country: US (occurrence: US)
  Receive Date: 20160802
  Receipt Date: 20160822
  Transmission Date: 20161109
  Serious: Yes (Hospitalization)
  Sender: FDA-Public Use
  Company Number: US-VERTEX PHARMACEUTICALS-2016-004620

PATIENT
  Age: 16 Year
  Sex: Male

DRUGS (23)
  1. PROAIR HFA [Concomitant]
     Active Substance: ALBUTEROL SULFATE
  2. VITAMIN C [Concomitant]
     Active Substance: ASCORBIC ACID
  3. MULTIVITAMIN [Concomitant]
     Active Substance: VITAMINS
  4. VITAMIN E [Concomitant]
     Active Substance: .ALPHA.-TOCOPHEROL
  5. N-ACETYL-L-CYSTEINE [Concomitant]
     Active Substance: ACETYLCYSTEINE
  6. CURCUMIN [Concomitant]
     Active Substance: CURCUMIN
  7. MAGNESIUM [Concomitant]
     Active Substance: MAGNESIUM
  8. TOBI [Concomitant]
     Active Substance: TOBRAMYCIN
  9. FISH OIL W/VITAMIN E NOS [Concomitant]
  10. CAYSTON [Concomitant]
     Active Substance: AZTREONAM
  11. CULTURELLE [Concomitant]
     Active Substance: LACTOBACILLUS RHAMNOSUS
  12. MUCOMYST [Concomitant]
     Active Substance: ACETYLCYSTEINE
  13. ALLEGRA [Concomitant]
     Active Substance: FEXOFENADINE HYDROCHLORIDE
  14. CREON [Concomitant]
     Active Substance: PANCRELIPASE AMYLASE\PANCRELIPASE LIPASE\PANCRELIPASE PROTEASE
  15. ORKAMBI [Suspect]
     Active Substance: IVACAFTOR\LUMACAFTOR
     Indication: CYSTIC FIBROSIS
     Dosage: 400-250MG, BID
     Route: 048
     Dates: start: 20150818
  16. VITAMIN D [Concomitant]
     Active Substance: CHOLECALCIFEROL
  17. HYPERSAL [Concomitant]
  18. NOVOLOG [Concomitant]
     Active Substance: INSULIN ASPART
  19. PULMOZYME [Concomitant]
     Active Substance: DORNASE ALFA
  20. FLONASE [Concomitant]
     Active Substance: FLUTICASONE PROPIONATE
  21. AQUADEKS [Concomitant]
     Active Substance: MINERALS\VITAMINS
  22. LANTUS [Concomitant]
     Active Substance: INSULIN GLARGINE
  23. ZANTAC [Concomitant]
     Active Substance: RANITIDINE HYDROCHLORIDE

REACTIONS (3)
  - Increased bronchial secretion [Unknown]
  - Cough [Unknown]
  - Pulmonary function test decreased [Recovering/Resolving]

NARRATIVE: CASE EVENT DATE: 20150818
